FAERS Safety Report 8867079 (Version 1)
Quarter: 2012Q4

REPORT INFORMATION
  Report Type: 
  Country: US (occurrence: US)
  Receive Date: 20121025
  Receipt Date: 20121025
  Transmission Date: 20130627
  Serious: No
  Sender: FDA-Public Use
  Company Number: US-AMGEN-USASP2012014601

PATIENT
  Sex: Female
  Weight: 69.39 kg

DRUGS (6)
  1. ENBREL [Suspect]
     Indication: PRODUCT USED FOR UNKNOWN INDICATION
     Dosage: 50 mg, qwk
     Route: 058
  2. SIMPONI [Concomitant]
  3. HUMIRA [Concomitant]
  4. METHOTREXATE [Concomitant]
     Dosage: 2.5 mg, UNK
     Route: 048
  5. MULTIVITAMIN                       /00097801/ [Concomitant]
     Route: 048
  6. CALCIUM D                          /00944201/ [Concomitant]
     Route: 048

REACTIONS (1)
  - Therapeutic response decreased [Unknown]
